FAERS Safety Report 17856530 (Version 5)
Quarter: 2023Q4

REPORT INFORMATION
  Report Type: Report from Study
  Country: GB (occurrence: GB)
  Receive Date: 20200603
  Receipt Date: 20231020
  Transmission Date: 20240109
  Serious: Yes (Hospitalization, Other)
  Sender: FDA-Public Use
  Company Number: GB-ABBVIE-20K-167-3424248-00

PATIENT
  Age: 23 Year
  Sex: Male

DRUGS (10)
  1. HUMIRA [Suspect]
     Active Substance: ADALIMUMAB
     Indication: Colitis ulcerative
     Route: 058
     Dates: start: 20160404, end: 20161006
  2. PREDNISOLONE [Concomitant]
     Active Substance: PREDNISOLONE
     Indication: Colitis ulcerative
     Dosage: 10 / 5 MG ALTERNATE DAY
     Route: 048
     Dates: start: 201503
  3. MYCOPHENOLATE MOFETIL [Concomitant]
     Active Substance: MYCOPHENOLATE MOFETIL
     Indication: Autoimmune disorder
     Dosage: 250/500 MG ALTERNATE DAY
     Route: 048
     Dates: start: 20140629
  4. URSODIOL [Concomitant]
     Active Substance: URSODIOL
     Indication: Autoimmune disorder
     Route: 048
     Dates: start: 2013
  5. PENTASA [Concomitant]
     Active Substance: MESALAMINE
     Indication: Colitis ulcerative
     Route: 048
     Dates: start: 20160120
  6. SALOFALK [Concomitant]
     Indication: Colitis ulcerative
     Route: 061
     Dates: start: 201606
  7. VEDOLIZUMAB [Concomitant]
     Active Substance: VEDOLIZUMAB
     Indication: Colitis ulcerative
     Route: 041
     Dates: start: 20161024, end: 20220314
  8. OMEPRAZOLE [Concomitant]
     Active Substance: OMEPRAZOLE
     Indication: Gastrointestinal disorder prophylaxis
     Route: 048
     Dates: start: 201912
  9. AMLODIPINE [Concomitant]
     Active Substance: AMLODIPINE BESYLATE
     Indication: Hypertension
     Route: 048
     Dates: start: 201912
  10. MAGNESIUM [Concomitant]
     Active Substance: MAGNESIUM
     Indication: Blood magnesium decreased
     Dosage: TIME INTERVAL: AS NECESSARY
     Route: 048
     Dates: start: 201912

REACTIONS (1)
  - Autoimmune cholangitis [Recovered/Resolved]

NARRATIVE: CASE EVENT DATE: 20191208
